FAERS Safety Report 16843515 (Version 1)
Quarter: 2019Q3

REPORT INFORMATION
  Report Type: Spontaneous
  Country: US (occurrence: US)
  Receive Date: 20190924
  Receipt Date: 20190924
  Transmission Date: 20191005
  Serious: Yes (Life-Threatening, Hospitalization)
  Sender: FDA-Public Use
  Company Number: US-TEVA-2019-US-1112121

PATIENT
  Age: 43 Year
  Sex: Female

DRUGS (1)
  1. HYDROXYCHLOROQUINE [Suspect]
     Active Substance: HYDROXYCHLOROQUINE
     Indication: SERONEGATIVE ARTHRITIS
     Dosage: 400 MILLIGRAM DAILY; FOR 8 MONTHS
     Route: 065

REACTIONS (5)
  - Pleural effusion [Recovering/Resolving]
  - Toxicity to various agents [Recovering/Resolving]
  - Cardiac failure [Recovering/Resolving]
  - Sinus tachycardia [Recovering/Resolving]
  - Cardiomyopathy [Recovering/Resolving]
